FAERS Safety Report 8571640 (Version 7)
Quarter: 2013Q2

REPORT INFORMATION
  Report Type: Spontaneous
  Country: US (occurrence: US)
  Receive Date: 20120521
  Receipt Date: 20130426
  Transmission Date: 20140414
  Serious: Yes (Hospitalization, Disabling, Other)
  Sender: FDA-Public Use
  Company Number: US-009507513-1205USA02846

PATIENT
  Sex: Female
  Weight: 47.17 kg

DRUGS (4)
  1. FOSAMAX [Suspect]
     Indication: OSTEOPOROSIS
     Dosage: 70 MG, QW
     Route: 048
     Dates: start: 20070522, end: 20080328
  2. CALCIUM (UNSPECIFIED) (+) VITAMIN D (UNSPECIFIED) [Concomitant]
     Dosage: UNK
  3. CALCIUM (UNSPECIFIED) [Concomitant]
     Dosage: 1000 MG, UNK
     Dates: start: 2003
  4. ALENDRONATE SODIUM [Suspect]
     Indication: OSTEOPOROSIS
     Dosage: 70 MG, UNK
     Route: 048
     Dates: start: 20080328, end: 20100424

REACTIONS (11)
  - Femur fracture [Not Recovered/Not Resolved]
  - Proctocolectomy [Unknown]
  - Fall [Unknown]
  - Cervical dysplasia [Unknown]
  - Cervical dysplasia [Unknown]
  - Atrophic vulvovaginitis [Unknown]
  - Haemorrhoids [Unknown]
  - Diverticulitis [Not Recovered/Not Resolved]
  - Ecchymosis [Unknown]
  - Joint effusion [Unknown]
  - Rash [Unknown]
